FAERS Safety Report 19270740 (Version 1)
Quarter: 2021Q2

REPORT INFORMATION
  Report Type: Spontaneous
  Country: US (occurrence: US)
  Receive Date: 20210518
  Receipt Date: 20210518
  Transmission Date: 20210717
  Serious: No
  Sender: FDA-Public Use
  Company Number: US-SA-2021SA154894

PATIENT
  Sex: Male

DRUGS (2)
  1. CLARITINE [Concomitant]
     Active Substance: LORATADINE
     Route: 065
  2. ALLEGRA?D 24 HOUR [Suspect]
     Active Substance: FEXOFENADINE HYDROCHLORIDE\PSEUDOEPHEDRINE HYDROCHLORIDE
     Indication: HYPERSENSITIVITY
     Dosage: DRUG STRUCTURE DOSAGE : 180MG/240MG DRUG INTERVAL DOSAGE : Q 24 HOURS, QD
     Route: 065

REACTIONS (1)
  - Therapeutic response decreased [Unknown]
